FAERS Safety Report 8244620-5 (Version None)
Quarter: 2012Q1

REPORT INFORMATION
  Report Type: 
  Country: None (occurrence: None)
  Receive Date: 20120329
  Receipt Date: 20120326
  Transmission Date: 20120608
  Serious: Yes (Death)
  Sender: FDA-Public Use
  Company Number: US-CELGENEUS-163-21880-12032962

PATIENT
  Sex: Female

DRUGS (8)
  1. TRAZODONE HCL [Concomitant]
     Route: 065
  2. DEXAMETHASONE [Concomitant]
     Route: 065
  3. CENTRUM [Concomitant]
     Route: 065
  4. REVLIMID [Suspect]
     Indication: MULTIPLE MYELOMA
     Dosage: 15 MILLIGRAM
     Route: 048
     Dates: start: 20110815
  5. DIOVAN [Concomitant]
     Route: 065
  6. M.V.I. [Concomitant]
     Route: 065
  7. ZOMETA [Concomitant]
     Route: 065
  8. CITRACAL D [Concomitant]
     Route: 065

REACTIONS (1)
  - DEATH [None]
